FAERS Safety Report 7765223-2 (Version None)
Quarter: 2011Q3

REPORT INFORMATION
  Report Type: 
  Country: None (occurrence: None)
  Receive Date: 20110921
  Receipt Date: 20110913
  Transmission Date: 20111222
  Serious: Yes (Other)
  Sender: FDA-Public Use
  Company Number: US-GLAXOSMITHKLINE-A0944476A

PATIENT
  Age: 88 Year
  Sex: Female

DRUGS (11)
  1. COREG [Suspect]
     Indication: CARDIAC FAILURE CONGESTIVE
     Dosage: 12.5MG TWICE PER DAY
     Route: 048
     Dates: start: 20010101
  2. NITROGLYCERIN [Suspect]
  3. UNKNOWN ANTIBIOTIC [Suspect]
     Indication: PRODUCT USED FOR UNKNOWN INDICATION
     Route: 065
  4. NORVASC [Concomitant]
  5. OMEPRAZOLE [Concomitant]
  6. ASCORBIC ACID [Concomitant]
  7. MIRALAX [Concomitant]
  8. CLONAZEPAM [Concomitant]
  9. LIPITOR [Concomitant]
  10. ACCUPRIL [Concomitant]
  11. ELAVIL [Concomitant]

REACTIONS (2)
  - ARRHYTHMIA [None]
  - LOSS OF CONSCIOUSNESS [None]
